FAERS Safety Report 8887680 (Version 4)
Quarter: 2013Q2

REPORT INFORMATION
  Report Type: Report from Study
  Country: JP (occurrence: JP)
  Receive Date: 20121106
  Receipt Date: 20130501
  Transmission Date: 20140414
  Serious: Yes (Other)
  Sender: FDA-Public Use
  Company Number: JP-PFIZER INC-2012273397

PATIENT
  Age: 49 Year
  Sex: Female
  Weight: 72 kg

DRUGS (16)
  1. FOSPHENYTOIN SODIUM [Suspect]
     Indication: CONVULSION PROPHYLAXIS
     Dosage: 15 MG/KG, 54 MG/MIN
     Dates: start: 20120922
  2. FOSPHENYTOIN SODIUM [Suspect]
     Dosage: 6.25 MG/KG, 60 MG/MIN
     Dates: start: 20120923
  3. FOSPHENYTOIN SODIUM [Suspect]
     Dosage: 6.25 MG/KG, 60 MG/MIN
     Dates: start: 20120924
  4. FOSPHENYTOIN SODIUM [Suspect]
     Dosage: 6.25 MG/KG, 60 MG/MIN
     Dates: start: 20120925, end: 20120926
  5. GASTER [Concomitant]
     Indication: PROPHYLAXIS
     Dosage: 40 MG
     Dates: end: 20120921
  6. SULBACILLIN [Concomitant]
     Dosage: 9.0 G, UNK
     Dates: end: 20120921
  7. PANTOL [Concomitant]
     Indication: PROPHYLAXIS
     Dosage: 1000 MG, UNK
  8. LEPETAN [Concomitant]
     Indication: PAIN
     Dosage: 0.2 MG, UNK
     Dates: start: 20120922, end: 20120924
  9. HUMULIN R [Concomitant]
     Indication: PROPHYLAXIS
     Dosage: 16 UNITS, UNK
     Dates: start: 20120922
  10. TAKEPRON [Concomitant]
     Indication: PROPHYLAXIS
     Dosage: 30 MG, UNK
     Route: 048
     Dates: start: 20120922
  11. PLETAAL [Concomitant]
     Indication: PROPHYLAXIS
     Dosage: 100 MG
     Route: 048
     Dates: start: 20120922
  12. CELECOX [Concomitant]
     Indication: PAIN
     Dosage: 200 MG, UNK
     Route: 048
     Dates: start: 20120922
  13. ALEVIATIN [Concomitant]
     Dosage: 2 G, UNK
     Route: 048
     Dates: start: 20120926, end: 20120927
  14. EXCEGRAN [Concomitant]
     Dosage: 1 G, UNK
     Route: 048
     Dates: start: 20120927
  15. CEFTRIAXONE SODIUM [Concomitant]
     Dosage: 1 G
  16. FASUDIL HYDROCHLORIDE [Concomitant]
     Dosage: UNK

REACTIONS (1)
  - Hepatic function abnormal [Recovered/Resolved]
